FAERS Safety Report 4845440-1 (Version None)
Quarter: 2005Q4

REPORT INFORMATION
  Report Type: 
  Country: None (occurrence: None)
  Receive Date: 20051125
  Receipt Date: 20051115
  Transmission Date: 20060501
  Serious: Yes (Hospitalization)
  Sender: FDA-Public Use
  Company Number: HQWYE655721NOV05

PATIENT
  Age: 34 Year
  Sex: Female

DRUGS (2)
  1. RAPAMUNE [Suspect]
     Indication: IMMUNOSUPPRESSANT DRUG THERAPY
  2. RAPAMUNE [Suspect]
     Indication: PROPHYLAXIS AGAINST TRANSPLANT REJECTION

REACTIONS (7)
  - ATYPICAL MYCOBACTERIAL INFECTION [None]
  - LUNG INFECTION [None]
  - LUNG INFILTRATION [None]
  - LUNG NEOPLASM [None]
  - PNEUMONITIS [None]
  - TUBERCULOSIS [None]
  - UVEITIS [None]
